FAERS Safety Report 17204974 (Version 3)
Quarter: 2020Q1

REPORT INFORMATION
  Report Type: Spontaneous
  Country: PR (occurrence: PR)
  Receive Date: 20191227
  Receipt Date: 20200327
  Transmission Date: 20200409
  Serious: Yes (Hospitalization, Other)
  Sender: FDA-Public Use
  Company Number: PR-BRISTOL-MYERS SQUIBB COMPANY-BMS-2019-122123

PATIENT
  Sex: Male

DRUGS (1)
  1. OPDIVO [Suspect]
     Active Substance: NIVOLUMAB
     Indication: METASTATIC MALIGNANT MELANOMA
     Dosage: 240 MILLIGRAM, Q2WK
     Route: 042

REACTIONS (6)
  - Confusional state [Not Recovered/Not Resolved]
  - Encephalitis [Not Recovered/Not Resolved]
  - Cystitis [Recovered/Resolved]
  - Urinary incontinence [Not Recovered/Not Resolved]
  - Colitis [Not Recovered/Not Resolved]
  - Neurological symptom [Not Recovered/Not Resolved]
